FAERS Safety Report 9912157 (Version 1)
Quarter: 2014Q1

REPORT INFORMATION
  Report Type: Other
  Country: US (occurrence: US)
  Receive Date: 20140220
  Receipt Date: 20140220
  Transmission Date: 20141002
  Serious: Yes (Hospitalization)
  Sender: FDA-Public Use
  Company Number: US-BRISTOL-MYERS SQUIBB COMPANY-20181038

PATIENT
  Age: 53 Year
  Sex: Male

DRUGS (2)
  1. METFORMIN HCL [Suspect]
     Indication: DIABETES MELLITUS
  2. QUETIAPINE [Suspect]
     Indication: ANTIDEPRESSANT THERAPY
     Dosage: DOSE DOUBLED 300 TO 600 MG?DECREASED TO 200 MG DAILY,

REACTIONS (1)
  - Ketoacidosis [Recovered/Resolved]
